FAERS Safety Report 12277843 (Version 1)
Quarter: 2016Q2

REPORT INFORMATION
  Report Type: Spontaneous
  Country: US (occurrence: US)
  Receive Date: 20160418
  Receipt Date: 20160418
  Transmission Date: 20160815
  Serious: Yes (Death)
  Sender: FDA-Public Use
  Company Number: US-PFIZER INC-2016218557

PATIENT

DRUGS (1)
  1. TYGACIL [Suspect]
     Active Substance: TIGECYCLINE
     Indication: ACINETOBACTER INFECTION

REACTIONS (1)
  - Death [Fatal]

NARRATIVE: CASE EVENT DATE: 20160414
